FAERS Safety Report 21955808 (Version 1)
Quarter: 2023Q1

REPORT INFORMATION
  Report Type: Spontaneous
  Country: FR (occurrence: FR)
  Receive Date: 20230206
  Receipt Date: 20230206
  Transmission Date: 20230418
  Serious: Yes (Death, Life-Threatening, Hospitalization)
  Sender: FDA-Public Use
  Company Number: FR-MACLEODS PHARMACEUTICALS US LTD-MAC2023039593

PATIENT

DRUGS (1)
  1. METFORMIN [Suspect]
     Active Substance: METFORMIN HYDROCHLORIDE
     Indication: Diabetes mellitus
     Dosage: 1.7 GRAM, QD
     Route: 065

REACTIONS (5)
  - Hepatic failure [Fatal]
  - Shock [Fatal]
  - Cardio-respiratory distress [Fatal]
  - Anuria [Fatal]
  - Lactic acidosis [Fatal]
